FAERS Safety Report 10257925 (Version 3)
Quarter: 2019Q4

REPORT INFORMATION
  Report Type: Spontaneous
  Country: US (occurrence: US)
  Receive Date: 20140625
  Receipt Date: 20191028
  Transmission Date: 20200122
  Serious: No
  Sender: FDA-Public Use
  Company Number: US-PFIZER INC-2014170535

PATIENT
  Age: 54 Year
  Sex: Female
  Weight: 81.63 kg

DRUGS (1)
  1. CORTISONE [Suspect]
     Active Substance: CORTISONE
     Indication: ELECTROLYTE IMBALANCE
     Dosage: 0.1 MG, DAILY

REACTIONS (1)
  - Reaction to excipient [Unknown]

NARRATIVE: CASE EVENT DATE: 2009
